FAERS Safety Report 9180083 (Version 1)
Quarter: 2012Q4

REPORT INFORMATION
  Report Type: 
  Country: TR (occurrence: TR)
  Receive Date: 20121029
  Receipt Date: 20121029
  Transmission Date: 20130627
  Serious: Yes (Hospitalization, Other)
  Sender: FDA-Public Use
  Company Number: TR-SANOFI-AVENTIS-2012SA077357

PATIENT
  Age: 48 Year
  Sex: Female
  Weight: 64 kg

DRUGS (13)
  1. LEFLUNOMIDE [Suspect]
     Indication: DRUG USE FOR UNKNOWN INDICATION
     Route: 065
     Dates: start: 20080101
  2. LEFLUNOMIDE [Suspect]
     Indication: DRUG USE FOR UNKNOWN INDICATION
     Route: 065
     Dates: start: 20081101
  3. TOCILIZUMAB [Suspect]
     Indication: RHEUMATOID ARTHRITIS
     Route: 042
     Dates: start: 20111130
  4. TOCILIZUMAB [Suspect]
     Indication: RHEUMATOID ARTHRITIS
     Route: 042
     Dates: start: 20111130
  5. PEREBRON [Concomitant]
     Route: 065
     Dates: start: 20120117, end: 20120128
  6. AMLODIPINE BESILATE [Concomitant]
     Route: 065
     Dates: start: 20111228, end: 20111228
  7. AMLODIPINE BESILATE [Concomitant]
     Dates: start: 20120126, end: 20120229
  8. HYDROCHLOROTHIAZIDE/VALSARTAN [Concomitant]
     Dosage: daily dose: 80/12.5
     Dates: start: 20120229
  9. ENDAL [Concomitant]
     Dates: start: 20100101
  10. CYPROHEPTADINE HYDROCHLORIDE [Concomitant]
     Dosage: daily dose: 2x1
     Route: 065
     Dates: start: 20120329
  11. KESTINE [Concomitant]
     Dates: start: 20120209, end: 20120301
  12. LOTRIMIN [Concomitant]
     Dates: start: 20111114, end: 20120503
  13. DRAMAMINE [Concomitant]
     Dates: start: 20120329

REACTIONS (4)
  - Angina pectoris [Recovered/Resolved]
  - Lipids increased [Not Recovered/Not Resolved]
  - Hypertension [Recovered/Resolved]
  - Alanine aminotransferase increased [Unknown]
